FAERS Safety Report 12167637 (Version 1)
Quarter: 2016Q1

REPORT INFORMATION
  Report Type: Spontaneous
  Country: US (occurrence: None)
  Receive Date: 20160309
  Receipt Date: 20160309
  Transmission Date: 20160526
  Serious: Yes (Hospitalization)
  Sender: FDA-Public Use
  Company Number: None

PATIENT
  Age: 26 Year
  Sex: Female
  Weight: 59.42 kg

DRUGS (1)
  1. METRONIDAZOLE 500MG [Suspect]
     Active Substance: METRONIDAZOLE
     Indication: PELVIC INFLAMMATORY DISEASE
     Dosage: 1 TWICE DAILY TAKEN BY MOUTH
     Route: 048
     Dates: start: 20160303, end: 20160306

REACTIONS (5)
  - Nausea [None]
  - Fatigue [None]
  - Headache [None]
  - Paraesthesia [None]
  - Blood pressure increased [None]

NARRATIVE: CASE EVENT DATE: 20160306
